FAERS Safety Report 15769381 (Version 1)
Quarter: 2018Q4

REPORT INFORMATION
  Report Type: Spontaneous
  Country: CH (occurrence: CH)
  Receive Date: 20181228
  Receipt Date: 20181228
  Transmission Date: 20190205
  Serious: Yes (Other)
  Sender: FDA-Public Use
  Company Number: CH-BAXTER-2018BAX031282

PATIENT
  Age: 29 Year
  Sex: Male

DRUGS (5)
  1. DOXORUBICIN [Suspect]
     Active Substance: DOXORUBICIN
     Indication: PRODUCT USED FOR UNKNOWN INDICATION
     Dosage: FIRST LINE CHEMOTHERAPY
     Route: 065
     Dates: start: 201611, end: 201701
  2. VINCRISTINE [Suspect]
     Active Substance: VINCRISTINE
     Indication: PRODUCT USED FOR UNKNOWN INDICATION
     Dosage: FIRST LINE CHEMOTHERAPY
     Route: 065
     Dates: start: 201611, end: 201701
  3. HOLOXAN 2 G [Suspect]
     Active Substance: IFOSFAMIDE
     Indication: PRODUCT USED FOR UNKNOWN INDICATION
     Dosage: FIRST LINE CHEMOTHERAPY
     Route: 065
     Dates: start: 201611, end: 201701
  4. ETOPOSIDE. [Suspect]
     Active Substance: ETOPOSIDE
     Indication: PRODUCT USED FOR UNKNOWN INDICATION
     Dosage: FIRST LINE CHEMOTHERAPY
     Route: 065
     Dates: start: 201611, end: 201701
  5. ENDOXAN 1 G. TROCKENSUBSTANZ ZUR INTRAVEN?SEN INFUSION [Suspect]
     Active Substance: CYCLOPHOSPHAMIDE
     Indication: PRODUCT USED FOR UNKNOWN INDICATION
     Dosage: FIRST LINE CHEMOTHERAPY
     Route: 065
     Dates: start: 201611, end: 201701

REACTIONS (3)
  - Pain [Unknown]
  - Soft tissue sarcoma [Unknown]
  - Disease progression [Unknown]
